FAERS Safety Report 21639989 (Version 2)
Quarter: 2022Q4

REPORT INFORMATION
  Report Type: Report from Study
  Country: AU (occurrence: AU)
  Receive Date: 20221124
  Receipt Date: 20221128
  Transmission Date: 20230113
  Serious: Yes (Hospitalization)
  Sender: FDA-Public Use
  Company Number: AU-ABBVIE-4212478

PATIENT
  Age: 84 Year
  Sex: Male

DRUGS (2)
  1. LEUPROLIDE ACETATE [Suspect]
     Active Substance: LEUPROLIDE ACETATE
     Indication: Prostate cancer
     Route: 030
     Dates: start: 2016
  2. LEUPROLIDE ACETATE [Suspect]
     Active Substance: LEUPROLIDE ACETATE
     Route: 030
     Dates: start: 20200618

REACTIONS (3)
  - Rib fracture [Unknown]
  - Fall [Recovering/Resolving]
  - Rib fracture [Recovering/Resolving]

NARRATIVE: CASE EVENT DATE: 20221117
